FAERS Safety Report 10729589 (Version 5)
Quarter: 2017Q1

REPORT INFORMATION
  Report Type: Spontaneous
  Country: JP (occurrence: JP)
  Receive Date: 20150122
  Receipt Date: 20170110
  Transmission Date: 20170428
  Serious: Yes (Death, Life-Threatening, Other)
  Sender: FDA-Public Use
  Company Number: JP-OTSUKA-JP-2015-10261

PATIENT
  Age: 98 Year
  Sex: Female

DRUGS (4)
  1. SAMSCA [Suspect]
     Active Substance: TOLVAPTAN
     Indication: OEDEMA DUE TO CARDIAC DISEASE
     Dosage: 7.5 MG, QD
     Route: 048
     Dates: start: 20141113, end: 20141117
  2. DIART [Concomitant]
     Active Substance: AZOSEMIDE
     Indication: PRODUCT USED FOR UNKNOWN INDICATION
     Dosage: 30 MG, QD
     Route: 048
     Dates: start: 20141112, end: 20141123
  3. BAYASPIRIN [Concomitant]
     Active Substance: ASPIRIN
     Indication: PRODUCT USED FOR UNKNOWN INDICATION
     Dosage: 100 MG, QD
     Route: 048
     Dates: start: 20141112, end: 20141123
  4. ATORVASTATIN AL [Concomitant]
     Indication: PRODUCT USED FOR UNKNOWN INDICATION
     Dosage: 10 MG, QD
     Route: 048
     Dates: start: 20141112, end: 20141123

REACTIONS (4)
  - Cardio-respiratory arrest [Unknown]
  - Ventricular fibrillation [Unknown]
  - Hypernatraemia [Not Recovered/Not Resolved]
  - Emphysematous pyelonephritis [Fatal]

NARRATIVE: CASE EVENT DATE: 20141117
